FAERS Safety Report 15136477 (Version 1)
Quarter: 2018Q3

REPORT INFORMATION
  Report Type: Spontaneous
  Country: ES (occurrence: ES)
  Receive Date: 20180712
  Receipt Date: 20180712
  Transmission Date: 20181010
  Serious: Yes (Other)
  Sender: FDA-Public Use
  Company Number: PHHY2018ES037045

PATIENT
  Age: 44 Year
  Sex: Female

DRUGS (1)
  1. ETANERCEPT [Suspect]
     Active Substance: ETANERCEPT
     Indication: ANKYLOSING SPONDYLITIS
     Dosage: 50 MG, QW (ONCE A WEEK)
     Route: 058
     Dates: start: 20110520, end: 20180201

REACTIONS (1)
  - Migraine with aura [Recovering/Resolving]

NARRATIVE: CASE EVENT DATE: 2012
